FAERS Safety Report 21154529 (Version 11)
Quarter: 2023Q2

REPORT INFORMATION
  Report Type: Report from Study
  Country: TR (occurrence: None)
  Receive Date: 20220801
  Receipt Date: 20230614
  Transmission Date: 20230722
  Serious: Yes (Life-Threatening, Hospitalization)
  Sender: FDA-Public Use
  Company Number: TR-ROCHE-3149739

PATIENT
  Age: 61 Year
  Sex: Female

DRUGS (11)
  1. ATEZOLIZUMAB [Suspect]
     Active Substance: ATEZOLIZUMAB
     Indication: Non-small cell lung cancer metastatic
     Dosage: ON 09/MAY/2021 AT 1.50 PM SHE RECEIVED LAST DOSE OF ATEZOLIZUMAB OF 1875 MG PRIOR TO AE AND SAE
     Route: 058
     Dates: start: 20211014
  2. SINGULAIR [Concomitant]
     Active Substance: MONTELUKAST SODIUM
     Indication: Chronic obstructive pulmonary disease
     Route: 048
     Dates: start: 2019
  3. BREQUAL [Concomitant]
     Indication: Chronic obstructive pulmonary disease
     Dosage: 50 OTHER
     Route: 048
  4. ARIPA [Concomitant]
     Indication: Depression
     Route: 048
     Dates: start: 2019
  5. TIOUMIT [Concomitant]
     Indication: Chronic obstructive pulmonary disease
     Dosage: 18 OTHER
     Route: 048
     Dates: start: 2019
  6. MIRABEGRON [Concomitant]
     Active Substance: MIRABEGRON
     Indication: Depression
     Route: 048
     Dates: start: 2019
  7. ESCITALOPRAM OXALATE [Concomitant]
     Active Substance: ESCITALOPRAM OXALATE
     Indication: Depression
     Route: 048
     Dates: start: 2019
  8. PROTINUM [Concomitant]
     Indication: Gastrooesophageal reflux disease
     Route: 048
     Dates: start: 2019
  9. GYREX (TURKEY) [Concomitant]
     Indication: Depression
     Route: 048
     Dates: start: 2019
  10. IMUNEKS (TURKEY) [Concomitant]
     Indication: Prophylaxis
     Route: 048
     Dates: start: 20211209
  11. CIPRO [Concomitant]
     Active Substance: CIPROFLOXACIN HYDROCHLORIDE
     Indication: Cystitis
     Route: 048
     Dates: start: 20220510

REACTIONS (1)
  - Nephropathy [Recovered/Resolved]

NARRATIVE: CASE EVENT DATE: 20220725
